FAERS Safety Report 9247430 (Version 1)
Quarter: 2013Q2

REPORT INFORMATION
  Report Type: Spontaneous
  Country: US (occurrence: US)
  Receive Date: 20130423
  Receipt Date: 20130423
  Transmission Date: 20140414
  Serious: No
  Sender: FDA-Public Use
  Company Number: US-MYLANLABS-2013S1004121

PATIENT
  Age: 61 Year
  Sex: Male
  Weight: 81.65 kg

DRUGS (3)
  1. IRBESARTAN AND HYDROCHLOROTHIAZIDE TABLETS USP [Suspect]
     Indication: BLOOD PRESSURE INCREASED
     Route: 048
     Dates: start: 20121206, end: 20130103
  2. FINASTERIDE [Concomitant]
     Indication: BENIGN PROSTATIC HYPERPLASIA
     Route: 048
  3. VYTORIN [Concomitant]
     Indication: BLOOD CHOLESTEROL

REACTIONS (3)
  - Drug effect decreased [Recovered/Resolved]
  - Hypertension [Recovered/Resolved]
  - Gout [Not Recovered/Not Resolved]
